FAERS Safety Report 8405753-3 (Version None)
Quarter: 2012Q2

REPORT INFORMATION
  Report Type: 
  Country: None (occurrence: None)
  Receive Date: 20120530
  Receipt Date: 20120530
  Transmission Date: 20120825
  Serious: Yes (Life-Threatening, Disabling)
  Sender: FDA-Public Use
  Company Number: None

PATIENT
  Sex: Male
  Weight: 70.5 kg

DRUGS (3)
  1. LEVETIRACETAM [Suspect]
     Indication: EPILEPSY
     Dosage: 1500 QAM AND 1750 QPM PO END OF 2009 - END OF 2010
     Route: 048
     Dates: start: 20090101, end: 20100101
  2. HELIXATE [Concomitant]
  3. VIMPAT [Concomitant]

REACTIONS (3)
  - PRODUCT SUBSTITUTION ISSUE [None]
  - DIZZINESS [None]
  - VERTIGO [None]
